FAERS Safety Report 26130226 (Version 1)
Quarter: 2025Q4

REPORT INFORMATION
  Report Type: Spontaneous
  Country: US (occurrence: US)
  Receive Date: 20251208
  Receipt Date: 20251208
  Transmission Date: 20260118
  Serious: No
  Sender: ARS PHARMACEUTICALS OPERATIONS, INC.
  Company Number: US-ARS PHARMACEUTICALS OPERATIONS, INC.-2025ARP00144

PATIENT
  Age: 18 Year
  Sex: Female

DRUGS (1)
  1. NEFFY [Suspect]
     Active Substance: EPINEPHRINE
     Indication: Anaphylactic reaction
     Dosage: UNK, UNKNOWN
     Route: 045
     Dates: start: 202410

REACTIONS (1)
  - Bronchitis [Recovered/Resolved]

NARRATIVE: CASE EVENT DATE: 20250901
